FAERS Safety Report 6793296-2 (Version None)
Quarter: 2010Q2

REPORT INFORMATION
  Report Type: 
  Country: None (occurrence: None)
  Receive Date: 20100624
  Receipt Date: 20091103
  Transmission Date: 20101027
  Serious: Yes (Death)
  Sender: FDA-Public Use
  Company Number: US-MYLANLABS-2009S1019111

PATIENT
  Age: 82 Year
  Sex: Male

DRUGS (17)
  1. CLOZAPINE [Suspect]
     Route: 048
     Dates: end: 20091022
  2. LASIX [Concomitant]
  3. INSULIN [Concomitant]
  4. NOVOLOG [Concomitant]
  5. FOLIC ACID [Concomitant]
  6. PROTONIX [Concomitant]
  7. ENALAPRIL MALEATE [Concomitant]
  8. CRESTOR [Concomitant]
  9. CARVEDILOL [Concomitant]
  10. ATROVENT [Concomitant]
  11. XOPENEX [Concomitant]
  12. EPOGEN [Concomitant]
  13. PROSCAR [Concomitant]
  14. IMDUR [Concomitant]
  15. SINEMET [Concomitant]
  16. ASPIRIN [Concomitant]
  17. FLOMAX /01280302/ [Concomitant]

REACTIONS (1)
  - DEATH [None]
